FAERS Safety Report 14343435 (Version 4)
Quarter: 2018Q2

REPORT INFORMATION
  Report Type: Spontaneous
  Country: US (occurrence: US)
  Receive Date: 20180102
  Receipt Date: 20180410
  Transmission Date: 20180711
  Serious: Yes (Other)
  Sender: FDA-Public Use
  Company Number: US-PFIZER INC-2017555187

PATIENT
  Sex: Female
  Weight: 61 kg

DRUGS (2)
  1. ADVIL [Suspect]
     Active Substance: IBUPROFEN
     Indication: RADIATION INJURY
  2. ADVIL [Suspect]
     Active Substance: IBUPROFEN
     Indication: WOUND
     Dosage: 200 MG, 1X/DAY (200MG, ONE LIQUIGEL MINI, BY MOUTH, ONE TIME)
     Route: 048
     Dates: start: 20171227, end: 20171227

REACTIONS (9)
  - Dysphonia [Not Recovered/Not Resolved]
  - Cough [Unknown]
  - Product use complaint [Unknown]
  - Foreign body in gastrointestinal tract [Unknown]
  - Oropharyngeal pain [Not Recovered/Not Resolved]
  - Foreign body in respiratory tract [Unknown]
  - Choking [Recovered/Resolved]
  - Dysphagia [Unknown]
  - Product size issue [Recovered/Resolved]

NARRATIVE: CASE EVENT DATE: 20171227
